FAERS Safety Report 24441931 (Version 2)
Quarter: 2024Q4

REPORT INFORMATION
  Report Type: Report from Study
  Country: KR (occurrence: KR)
  Receive Date: 20241016
  Receipt Date: 20241017
  Transmission Date: 20250114
  Serious: No
  Sender: ROCHE
  Company Number: KR-CHUGAI-2024007026

PATIENT
  Age: 9 Year
  Sex: Male
  Weight: 32.4 kg

DRUGS (4)
  1. HEMLIBRA [Suspect]
     Active Substance: EMICIZUMAB-KXWH
     Indication: Haemophilia A without inhibitors
     Dosage: 3 MILLIGRAM/KILOGRAM, ONCE/WEEK
     Route: 058
     Dates: start: 20230721, end: 20230818
  2. HEMLIBRA [Suspect]
     Active Substance: EMICIZUMAB-KXWH
     Dosage: 3 MILLIGRAM/KILOGRAM, ONCE/2WEEKS
     Route: 058
     Dates: start: 20230901
  3. CELEBREX [Concomitant]
     Active Substance: CELECOXIB
     Indication: Haemophilic arthropathy
     Dosage: 100 MILLIGRAM, BID
     Dates: start: 20230818, end: 20230901
  4. ALMAGEL [ALGELDRATE;MAGNESIUM HYDROXIDE] [Concomitant]
     Indication: Gastrointestinal disorder prophylaxis
     Dosage: 1 DOSAGE FORM, BID
     Dates: start: 20230818, end: 20230901

REACTIONS (2)
  - Fall [Unknown]
  - Contusion [Recovered/Resolved]

NARRATIVE: CASE EVENT DATE: 20230821
